FAERS Safety Report 6037494-4 (Version None)
Quarter: 2009Q1

REPORT INFORMATION
  Report Type: 
  Country: None (occurrence: None)
  Receive Date: 20090114
  Receipt Date: 20090107
  Transmission Date: 20090719
  Serious: Yes (Other)
  Sender: FDA-Public Use
  Company Number: US-ROXANE LABORATORIES, INC.-2009-RO-00027RO

PATIENT
  Age: 43 Year
  Sex: Female
  Weight: 65 kg

DRUGS (13)
  1. TORSEMIDE [Suspect]
     Indication: ABDOMINAL DISTENSION
  2. TORSEMIDE [Suspect]
     Indication: FATIGUE
  3. DIGOXIN [Suspect]
     Dosage: .25MG
  4. FUROSEMIDE [Suspect]
     Dosage: 40MG
  5. WARFARIN SODIUM [Suspect]
     Indication: MITRAL VALVE REPLACEMENT
     Dates: start: 19930101
  6. WARFARIN SODIUM [Suspect]
     Indication: ATRIAL FIBRILLATION
  7. CARVEDILOL [Suspect]
     Dosage: 25MG
  8. SPIRONOLACTONE [Suspect]
     Dosage: 12.5MG
  9. LISINOPRIL [Suspect]
     Dosage: 10MG
  10. ASPIRIN [Suspect]
     Dosage: 81MG
  11. LEVOTHYROXINE SODIUM [Suspect]
     Dosage: .175MG
  12. ASCORBIC ACID [Suspect]
     Dosage: 500MG
  13. FERROUS SULFATE TAB [Suspect]
     Dosage: 650MG

REACTIONS (5)
  - ABDOMINAL DISTENSION [None]
  - DRUG INTERACTION [None]
  - FAMILY STRESS [None]
  - FATIGUE [None]
  - INTERNATIONAL NORMALISED RATIO INCREASED [None]
